FAERS Safety Report 19669539 (Version 1)
Quarter: 2021Q3

REPORT INFORMATION
  Report Type: Spontaneous
  Country: BH (occurrence: BH)
  Receive Date: 20210806
  Receipt Date: 20210806
  Transmission Date: 20211014
  Serious: Yes (Hospitalization)
  Sender: FDA-Public Use
  Company Number: BH-BAUSCH-BL-2021-026830

PATIENT
  Age: 52 Year
  Sex: Female

DRUGS (18)
  1. PARACETAMOL [Suspect]
     Active Substance: ACETAMINOPHEN
     Indication: COVID-19 PNEUMONIA
     Dosage: INTRAVENOUS OR ORAL
     Route: 065
  2. ZINC GLUCONATE [Concomitant]
     Active Substance: ZINC GLUCONATE
     Indication: COVID-19 PNEUMONIA
     Dosage: THROUGHOUT HOSPITAL STAY
     Route: 048
  3. CEFTRIAXONE. [Suspect]
     Active Substance: CEFTRIAXONE
     Indication: COVID-19 PNEUMONIA
     Route: 042
  4. OXYGEN. [Concomitant]
     Active Substance: OXYGEN
     Indication: COVID-19 PNEUMONIA
     Dosage: THROUGH NASAL CANNULA AND FACE MASK
     Route: 055
  5. DEXAMETHASONE. [Suspect]
     Active Substance: DEXAMETHASONE
     Indication: COVID-19 PNEUMONIA
     Route: 042
  6. DEXAMETHASONE. [Suspect]
     Active Substance: DEXAMETHASONE
     Indication: COVID-19 PNEUMONIA
     Route: 048
  7. DOXYCYCLINE. [Suspect]
     Active Substance: DOXYCYCLINE
     Indication: COVID-19 PNEUMONIA
     Route: 048
  8. FLUTICASONE FUROATE;VILANTEROL [Concomitant]
     Active Substance: FLUTICASONE FUROATE\VILANTEROL TRIFENATATE
     Indication: COVID-19 PNEUMONIA
     Dosage: DOSE: 1 PUFF
  9. SALBUTAMOL [Concomitant]
     Active Substance: ALBUTEROL
     Indication: COVID-19 PNEUMONIA
     Dosage: NEBULISED
  10. OMEPRAZOLE. [Suspect]
     Active Substance: OMEPRAZOLE
     Route: 048
  11. METOCLOPRAMIDE. [Concomitant]
     Active Substance: METOCLOPRAMIDE
     Indication: COVID-19 PNEUMONIA
     Dosage: AS NEEDED
     Route: 042
  12. OMEPRAZOLE. [Suspect]
     Active Substance: OMEPRAZOLE
     Indication: COVID-19 PNEUMONIA
     Route: 042
  13. IPRATROPIUM BROMIDE. [Concomitant]
     Active Substance: IPRATROPIUM BROMIDE
     Indication: COVID-19 PNEUMONIA
     Dosage: NEBULISED
  14. PANTOPRAZOLE [Concomitant]
     Active Substance: PANTOPRAZOLE
     Indication: COVID-19 PNEUMONIA
     Route: 048
  15. METHYLPREDNISOLONE. [Concomitant]
     Active Substance: METHYLPREDNISOLONE
     Indication: COVID-19 PNEUMONIA
     Dosage: 40?60 MG
     Route: 042
  16. ENOXAPARIN [Concomitant]
     Active Substance: ENOXAPARIN
     Indication: COVID-19 PNEUMONIA
     Dosage: 4000?12000 IU
     Route: 058
  17. VITAMIN D [Concomitant]
     Active Substance: VITAMIN D NOS
     Indication: COVID-19 PNEUMONIA
     Dosage: 50 000 IU PER ORAL ONCE WEEKLY
     Route: 048
  18. AZITHROMYCIN ANHYDROUS. [Concomitant]
     Active Substance: AZITHROMYCIN ANHYDROUS
     Indication: COVID-19 PNEUMONIA
     Route: 048

REACTIONS (1)
  - Pancreatitis acute [Recovering/Resolving]
